FAERS Safety Report 22599487 (Version 1)
Quarter: 2023Q2

REPORT INFORMATION
  Report Type: Spontaneous
  Country: US (occurrence: US)
  Receive Date: 20230614
  Receipt Date: 20230614
  Transmission Date: 20230721
  Serious: Yes (Hospitalization)
  Sender: FDA-Public Use
  Company Number: US-MYLANLABS-2023M1062578

PATIENT
  Age: 23 Year
  Sex: Female

DRUGS (3)
  1. AMIODARONE [Suspect]
     Active Substance: AMIODARONE
     Indication: Wolff-Parkinson-White syndrome
     Dosage: UNK
     Route: 065
  2. SOTALOL [Suspect]
     Active Substance: SOTALOL
     Indication: Wolff-Parkinson-White syndrome
     Dosage: UNK
     Route: 065
  3. FLECAINIDE [Suspect]
     Active Substance: FLECAINIDE
     Indication: Wolff-Parkinson-White syndrome
     Dosage: UNK
     Route: 065

REACTIONS (1)
  - Drug ineffective [Unknown]
